FAERS Safety Report 5383622-3 (Version None)
Quarter: 2007Q3

REPORT INFORMATION
  Report Type: 
  Country: None (occurrence: None)
  Receive Date: 20070706
  Receipt Date: 20070627
  Transmission Date: 20080115
  Serious: Yes (Hospitalization)
  Sender: FDA-Public Use
  Company Number: 6035129

PATIENT
  Age: 82 Year
  Sex: Female

DRUGS (12)
  1. EMCONOR (TABLET) (BISOPROLOL FUMARATE) [Suspect]
     Indication: DRUG USE FOR UNKNOWN INDICATION
     Dosage: ORAL
     Route: 048
  2. ENALAPRIL MALEATE [Suspect]
     Indication: DRUG USE FOR UNKNOWN INDICATION
     Dosage: ORAL
     Route: 048
  3. SIMVASTATIN ACTAVIS (SIMVASTATIN) [Concomitant]
  4. ACETAMINOPHEN [Concomitant]
  5. BRICANYL [Concomitant]
  6. FUROSEMIDE [Concomitant]
  7. PULMICORT [Concomitant]
  8. OXASCAND (OXAZEPAM) [Concomitant]
  9. NITROGLYCERIN BPM PHARMA (GLYCERYL TRINITRATE) [Concomitant]
  10. DEXOFEN (DEXTROPROPOXYPHENE NAPSILATE) [Concomitant]
  11. ASPIRIN [Concomitant]
  12. NOVOMIX 30 FLEXPEN (INSULIN ASPART) [Concomitant]

REACTIONS (2)
  - ORTHOSTATIC HYPOTENSION [None]
  - PETIT MAL EPILEPSY [None]
